FAERS Safety Report 7193217-7 (Version None)
Quarter: 2010Q4

REPORT INFORMATION
  Report Type: 
  Country: None (occurrence: None)
  Receive Date: 20101223
  Receipt Date: 20100901
  Transmission Date: 20110411
  Serious: No
  Sender: FDA-Public Use
  Company Number: US-AMGEN-KDL435569

PATIENT

DRUGS (12)
  1. ENBREL [Suspect]
     Indication: PRODUCT USED FOR UNKNOWN INDICATION
     Dosage: 50 MG, 2 TIMES/WK
     Route: 058
  2. DESVENLAFAXINE [Concomitant]
     Dosage: 50 MG, UNK
  3. METHOTREXATE [Concomitant]
     Dosage: 2.5 MG, UNK
  4. ATORVASTATIN CALCIUM [Concomitant]
     Dosage: 10 MG, UNK
  5. LEVOTHYROXINE SODIUM [Concomitant]
     Dosage: 25 MG, UNK
  6. MAGNESIUM [Concomitant]
     Dosage: 30 MG, UNK
  7. METOPROLOL TARTRATE [Concomitant]
     Dosage: 25 MG, UNK
  8. ESTRADIOL [Concomitant]
     Dosage: .5 MG, UNK
  9. HYDROCODONE BITARTRATE [Concomitant]
     Dosage: 500 MG, UNK
  10. FISH OIL [Concomitant]
     Dosage: UNK UNK, UNK
  11. CALCIUM CITRATE/VITAMIN D [Concomitant]
  12. COLECALCIFEROL [Concomitant]
     Dosage: UNK UNK, UNK

REACTIONS (3)
  - INJECTION SITE ERYTHEMA [None]
  - INJECTION SITE PRURITUS [None]
  - INJECTION SITE SWELLING [None]
